FAERS Safety Report 7170759-1 (Version None)
Quarter: 2010Q4

REPORT INFORMATION
  Report Type: 
  Country: None (occurrence: None)
  Receive Date: 20101217
  Receipt Date: 20101207
  Transmission Date: 20110411
  Serious: Yes (Hospitalization)
  Sender: FDA-Public Use
  Company Number: DE-ELI_LILLY_AND_COMPANY-DE201012001589

PATIENT
  Sex: Female

DRUGS (1)
  1. YENTREVE [Suspect]
     Indication: DEPRESSION
     Dosage: 20 MG, UNKNOWN
     Route: 048
     Dates: start: 20101116, end: 20101120

REACTIONS (4)
  - ANKLE FRACTURE [None]
  - CLAVICLE FRACTURE [None]
  - FALL [None]
  - SYNCOPE [None]
